FAERS Safety Report 7405229-6 (Version None)
Quarter: 2011Q1

REPORT INFORMATION
  Report Type: 
  Country: None (occurrence: None)
  Receive Date: 20110301
  Receipt Date: 20100207
  Transmission Date: 20110831
  Serious: Yes (Hospitalization)
  Sender: FDA-Public Use
  Company Number: 2211100-US-JNJFOC-20100205252

PATIENT
  Age: 85 Year
  Sex: Female
  Weight: 70.3075 kg

DRUGS (1)
  1. IBUPROFEN [Suspect]
     Indication: ILL-DEFINED DISORDER
     Dosage: ORAL
     Route: 048

REACTIONS (1)
  - ULCER HAEMORRHAGE [None]
